APPROVED DRUG PRODUCT: NANDROLONE DECANOATE
Active Ingredient: NANDROLONE DECANOATE
Strength: 100MG/ML
Dosage Form/Route: INJECTABLE;INJECTION
Application: A088290 | Product #001
Applicant: ABRAXIS PHARMACEUTICAL PRODUCTS
Approved: Oct 3, 1983 | RLD: No | RS: No | Type: DISCN